FAERS Safety Report 20239815 (Version 1)
Quarter: 2021Q4

REPORT INFORMATION
  Report Type: Report from Study
  Country: US (occurrence: US)
  Receive Date: 20211228
  Receipt Date: 20211228
  Transmission Date: 20220303
  Serious: Yes (Hospitalization)
  Sender: FDA-Public Use
  Company Number: US-BoehringerIngelheim-2021-BI-122167

PATIENT
  Age: 66 Year
  Sex: Male

DRUGS (1)
  1. OFEV [Suspect]
     Active Substance: NINTEDANIB
     Indication: Idiopathic pulmonary fibrosis
     Route: 048

REACTIONS (13)
  - Epistaxis [Not Recovered/Not Resolved]
  - Fatigue [Not Recovered/Not Resolved]
  - Knee operation [Not Recovered/Not Resolved]
  - Dyspnoea exertional [Not Recovered/Not Resolved]
  - Gait disturbance [Not Recovered/Not Resolved]
  - Blood pressure increased [Not Recovered/Not Resolved]
  - Headache [Not Recovered/Not Resolved]
  - Blood pressure increased [Recovered/Resolved]
  - Dyspnoea [Not Recovered/Not Resolved]
  - Depression [Not Recovered/Not Resolved]
  - Nausea [Recovered/Resolved]
  - Oropharyngeal pain [Unknown]
  - Hypertension [Recovered/Resolved]

NARRATIVE: CASE EVENT DATE: 20210101
